FAERS Safety Report 18584253 (Version 1)
Quarter: 2020Q4

REPORT INFORMATION
  Report Type: Spontaneous
  Country: CA (occurrence: CA)
  Receive Date: 20201207
  Receipt Date: 20201207
  Transmission Date: 20210114
  Serious: Yes (Hospitalization)
  Sender: FDA-Public Use
  Company Number: CA-CELLTRION INC.-2018CA021665

PATIENT

DRUGS (20)
  1. INFLECTRA [Suspect]
     Active Substance: INFLIXIMAB-DYYB
     Dosage: 400 MG EVERY 6 WEEKS
     Route: 042
     Dates: start: 20191009
  2. INFLECTRA [Suspect]
     Active Substance: INFLIXIMAB-DYYB
     Dosage: 400 MG EVERY 4 WEEKS
     Route: 042
     Dates: start: 20200513
  3. INFLECTRA [Suspect]
     Active Substance: INFLIXIMAB-DYYB
     Dosage: 400 MG EVERY 4 WEEKS
     Route: 042
     Dates: start: 20200807
  4. INFLECTRA [Suspect]
     Active Substance: INFLIXIMAB-DYYB
     Indication: CROHN^S DISEASE
     Dosage: 363 MG, 0,2,6 WEEKS, THEN EVERY 8 WEEKS
     Route: 042
     Dates: start: 20180716, end: 20190605
  5. INFLECTRA [Suspect]
     Active Substance: INFLIXIMAB-DYYB
     Dosage: 400 MG EVERY 6 WEEKS
     Route: 042
     Dates: start: 20200219
  6. INFLECTRA [Suspect]
     Active Substance: INFLIXIMAB-DYYB
     Dosage: UNK
     Route: 042
     Dates: start: 20180828
  7. INFLECTRA [Suspect]
     Active Substance: INFLIXIMAB-DYYB
     Dosage: 400 MG, EVERY 8 WEEKS TO BE ADMINISTERED OVER THE COURSE OF 1 HOUR
     Route: 042
  8. INFLECTRA [Suspect]
     Active Substance: INFLIXIMAB-DYYB
     Dosage: 400 MG EVERY 6 WEEKS
     Route: 042
     Dates: start: 20190716, end: 20200403
  9. INFLECTRA [Suspect]
     Active Substance: INFLIXIMAB-DYYB
     Dosage: 400 MG EVERY 4 WEEKS
     Route: 042
     Dates: start: 20200711
  10. INFLECTRA [Suspect]
     Active Substance: INFLIXIMAB-DYYB
     Dosage: 400 MG EVERY 4 WEEKS
     Route: 042
     Dates: start: 20200904
  11. INFLECTRA [Suspect]
     Active Substance: INFLIXIMAB-DYYB
     Dosage: 400 MG EVERY 6 WEEKS
     Route: 042
     Dates: start: 20190828
  12. INFLECTRA [Suspect]
     Active Substance: INFLIXIMAB-DYYB
     Dosage: 400 MG EVERY 4 WEEKS
     Route: 042
     Dates: start: 20200807
  13. INFLECTRA [Suspect]
     Active Substance: INFLIXIMAB-DYYB
     Dosage: 400 MG EVERY 6 WEEKS
     Route: 042
     Dates: start: 20200219
  14. NEXIUM [Concomitant]
     Active Substance: ESOMEPRAZOLE MAGNESIUM
     Indication: DYSPEPSIA
     Dosage: UNK
     Route: 065
  15. INFLECTRA [Suspect]
     Active Substance: INFLIXIMAB-DYYB
     Dosage: 400 MG EVERY 6 WEEKS
     Route: 042
     Dates: start: 20200403, end: 20200403
  16. INFLECTRA [Suspect]
     Active Substance: INFLIXIMAB-DYYB
     Dosage: 400 MG EVERY 6 WEEKS
     Route: 042
     Dates: start: 20201030
  17. INFLECTRA [Suspect]
     Active Substance: INFLIXIMAB-DYYB
     Dosage: 400 MG EVERY 6 WEEKS
     Route: 042
     Dates: start: 20201127
  18. ENTYVIO [Concomitant]
     Active Substance: VEDOLIZUMAB
     Dosage: UNK, EVERY 8 WEEKS
     Route: 065
     Dates: start: 201802
  19. PREDNISONE. [Concomitant]
     Active Substance: PREDNISONE
     Dosage: UNK
  20. PREDNISONE. [Concomitant]
     Active Substance: PREDNISONE
     Dosage: 40 MG, DAILY (TAPER DOSE 5MG Q 2 W)
     Route: 048
     Dates: start: 20180703

REACTIONS (16)
  - Insomnia [Unknown]
  - Inappropriate schedule of product administration [Unknown]
  - Intentional product use issue [Unknown]
  - Blood pressure systolic increased [Unknown]
  - Rash [Not Recovered/Not Resolved]
  - Weight increased [Unknown]
  - Gastrointestinal inflammation [Not Recovered/Not Resolved]
  - Rash pruritic [Not Recovered/Not Resolved]
  - Condition aggravated [Recovering/Resolving]
  - Obstruction [Unknown]
  - Off label use [Unknown]
  - Faecal calprotectin increased [Unknown]
  - Off label use [Unknown]
  - Drug level below therapeutic [Not Recovered/Not Resolved]
  - Herpes zoster [Not Recovered/Not Resolved]
  - Blood pressure increased [Unknown]

NARRATIVE: CASE EVENT DATE: 20180716
